FAERS Safety Report 9165127 (Version 4)
Quarter: 2013Q4

REPORT INFORMATION
  Report Type: Spontaneous
  Country: US (occurrence: US)
  Receive Date: 20130315
  Receipt Date: 20131107
  Transmission Date: 20140711
  Serious: Yes (Death, Hospitalization, Other)
  Sender: FDA-Public Use
  Company Number: US-B.I. PHARMACEUTICALS,INC./RIDGEFIELD-2013-BI-06644BP

PATIENT
  Age: 83 Year
  Sex: Male
  Weight: 78.02 kg

DRUGS (19)
  1. PRADAXA [Suspect]
     Indication: ANTICOAGULANT THERAPY
     Dosage: 300 MG
     Route: 048
     Dates: start: 20111206, end: 20111213
  2. PRADAXA [Suspect]
     Indication: HEART RATE IRREGULAR
  3. VITAMIN C [Concomitant]
     Indication: SUPPLEMENTATION THERAPY
     Dosage: 500 MG
     Route: 048
  4. LUMIGAN OPHT [Concomitant]
     Indication: DRY EYE
     Route: 031
  5. FOLIC ACID [Concomitant]
     Indication: SUPPLEMENTATION THERAPY
     Dosage: 1 MG
     Route: 048
  6. ANTIOXIDENT [Concomitant]
     Indication: SUPPLEMENTATION THERAPY
     Route: 048
  7. FISH OIL [Concomitant]
     Indication: SUPPLEMENTATION THERAPY
     Dosage: 2400 MG
     Route: 048
  8. GLUCOSAMINE HCL [Concomitant]
     Indication: SUPPLEMENTATION THERAPY
     Dosage: 500 MG
     Route: 048
  9. COMBIVENT INHALER [Concomitant]
     Indication: DYSPNOEA
     Route: 055
  10. PRO AIR INHALER [Concomitant]
     Indication: DYSPNOEA
     Route: 055
  11. CARDIZEM [Concomitant]
     Indication: ATRIAL FIBRILLATION
     Dosage: 120 MG
     Route: 048
  12. GARLIC [Concomitant]
     Indication: SUPPLEMENTATION THERAPY
     Dosage: 2000 MG
     Route: 048
  13. ASA [Concomitant]
     Indication: CARDIAC DISORDER
     Dosage: 325 MG
     Route: 048
  14. FLOMAX [Concomitant]
     Indication: MICTURITION DISORDER
     Dosage: 0.4 MG
     Route: 048
  15. LIPITOR [Concomitant]
     Indication: BLOOD CHOLESTEROL INCREASED
     Dosage: 10 MG
     Route: 048
  16. VITAMIN E [Concomitant]
     Indication: SUPPLEMENTATION THERAPY
     Dosage: 400 U
     Route: 048
  17. CHONDROITION [Concomitant]
     Indication: BONE DISORDER
     Dosage: 400 MG
     Route: 048
  18. CHONDROITION [Concomitant]
     Indication: ARTHROPATHY
  19. SYMBICORT INHALER [Concomitant]
     Indication: DYSPNOEA
     Route: 055

REACTIONS (7)
  - Haemorrhage [Fatal]
  - Pneumonia [Fatal]
  - Cardiac failure congestive [Fatal]
  - Haemoptysis [Not Recovered/Not Resolved]
  - Haematochezia [Unknown]
  - Bronchitis [Unknown]
  - Eye haemorrhage [Unknown]
